FAERS Safety Report 19659862 (Version 1)
Quarter: 2021Q3

REPORT INFORMATION
  Report Type: Report from Study
  Country: AU (occurrence: AU)
  Receive Date: 20210805
  Receipt Date: 20210805
  Transmission Date: 20211014
  Serious: Yes (Other)
  Sender: FDA-Public Use
  Company Number: AU-SNT-000169

PATIENT
  Age: 53 Year
  Sex: Male

DRUGS (1)
  1. POSACONAZOLE [Suspect]
     Active Substance: POSACONAZOLE
     Indication: FUNGAL INFECTION
     Route: 065

REACTIONS (13)
  - Granuloma [Unknown]
  - Dermatitis [Unknown]
  - Product use in unapproved indication [Unknown]
  - Vomiting [Unknown]
  - Diathermy [Unknown]
  - Hepatic function abnormal [Unknown]
  - Condition aggravated [Unknown]
  - Abdominal pain upper [Unknown]
  - Lethargy [Unknown]
  - Malaise [Unknown]
  - Disease recurrence [Unknown]
  - Limb mass [Unknown]
  - Venipuncture [Unknown]
